FAERS Safety Report 26004840 (Version 1)
Quarter: 2025Q4

REPORT INFORMATION
  Report Type: Spontaneous
  Country: EU (occurrence: EU)
  Receive Date: 20251106
  Receipt Date: 20251106
  Transmission Date: 20260118
  Serious: Yes (Other)
  Sender: TEVA
  Company Number: EU-TEVA-VS-3388990

PATIENT
  Age: 60 Year
  Sex: Female

DRUGS (1)
  1. FREMANEZUMAB [Suspect]
     Active Substance: FREMANEZUMAB
     Indication: Migraine
     Route: 058

REACTIONS (4)
  - Skin reaction [Recovering/Resolving]
  - Drug ineffective [Unknown]
  - Erythema [Recovering/Resolving]
  - Pain [Recovering/Resolving]
